FAERS Safety Report 8909833 (Version 2)
Quarter: 2013Q1

REPORT INFORMATION
  Report Type: Spontaneous
  Country: US (occurrence: US)
  Receive Date: 20121115
  Receipt Date: 20130105
  Transmission Date: 20140127
  Serious: No
  Sender: FDA-Public Use
  Company Number: US-JNJFOC-20121003324

PATIENT
  Age: 32 Year
  Sex: Female

DRUGS (2)
  1. INVEGA SUSTENNA [Suspect]
     Indication: BIPOLAR DISORDER
     Dosage: ONCE
     Route: 030
     Dates: start: 20120925, end: 20121001
  2. INVEGA SUSTENNA [Suspect]
     Indication: SCHIZOPHRENIA
     Dosage: ONCE
     Route: 030
     Dates: start: 20120925, end: 20121001

REACTIONS (2)
  - Local swelling [Recovered/Resolved]
  - Pain in extremity [Recovered/Resolved]
